FAERS Safety Report 19598815 (Version 1)
Quarter: 2021Q3

REPORT INFORMATION
  Report Type: Spontaneous
  Country: US (occurrence: US)
  Receive Date: 20210723
  Receipt Date: 20210723
  Transmission Date: 20211014
  Serious: Yes (Death, Other)
  Sender: FDA-Public Use
  Company Number: US-SHILPA MEDICARE LIMITED-SML-US-2021-00899

PATIENT
  Age: 71 Year
  Sex: Male

DRUGS (2)
  1. PRALATREXATE [Suspect]
     Active Substance: PRALATREXATE
     Indication: CUTANEOUS T-CELL LYMPHOMA STAGE I
     Route: 065
  2. GEMCITABINE, UNKNOWN [Suspect]
     Active Substance: GEMCITABINE
     Indication: CUTANEOUS T-CELL LYMPHOMA STAGE I
     Route: 065

REACTIONS (2)
  - Off label use [Unknown]
  - Drug ineffective [Fatal]
